FAERS Safety Report 4598423-3 (Version None)
Quarter: 2005Q1

REPORT INFORMATION
  Report Type: 
  Country: None (occurrence: None)
  Receive Date: 20050304
  Receipt Date: 20040308
  Transmission Date: 20050727
  Serious: Yes (Death, Hospitalization)
  Sender: FDA-Public Use
  Company Number: SE-ABBOTT-04P-150-0252872-00

PATIENT
  Age: 66 Year
  Sex: Male

DRUGS (9)
  1. HUMIRA [Suspect]
     Indication: RHEUMATOID ARTHRITIS
     Route: 058
     Dates: start: 20031215, end: 20040209
  2. METHOTREXATE [Suspect]
     Indication: DRUG USE FOR UNKNOWN INDICATION
     Dates: start: 19990101, end: 20040209
  3. PREDNISOLONE [Concomitant]
     Indication: DRUG USE FOR UNKNOWN INDICATION
  4. SULFASALAZINE [Concomitant]
     Indication: DRUG USE FOR UNKNOWN INDICATION
  5. NAPROXEN [Concomitant]
     Indication: DRUG USE FOR UNKNOWN INDICATION
  6. FOLACIN [Concomitant]
     Indication: DRUG USE FOR UNKNOWN INDICATION
  7. CALCIPOS-D [Concomitant]
     Indication: DRUG USE FOR UNKNOWN INDICATION
  8. STEROID ANTIBACTERIALS [Concomitant]
     Indication: DRUG USE FOR UNKNOWN INDICATION
  9. PREDNISOLONE [Concomitant]

REACTIONS (12)
  - ANXIETY [None]
  - BRONCHOPNEUMONIA [None]
  - CANDIDIASIS [None]
  - DIVERTICULITIS [None]
  - ENTEROCOCCAL INFECTION [None]
  - GENERAL PHYSICAL HEALTH DETERIORATION [None]
  - KLEBSIELLA INFECTION [None]
  - PNEUMOCYSTIS JIROVECI INFECTION [None]
  - PNEUMONIA [None]
  - POLYNEUROPATHY [None]
  - PULMONARY FIBROSIS [None]
  - RESPIRATORY FAILURE [None]
